FAERS Safety Report 4609436-7 (Version None)
Quarter: 2005Q1

REPORT INFORMATION
  Report Type: 
  Country: None (occurrence: None)
  Receive Date: 20050314
  Receipt Date: 20050301
  Transmission Date: 20050727
  Serious: Yes (Other)
  Sender: FDA-Public Use
  Company Number: 2005027986

PATIENT
  Sex: Male

DRUGS (2)
  1. MINIPRESS [Suspect]
     Indication: HYPERTENSION
     Dosage: 2 MG (1 MG, 1 IN 2 D)
     Dates: start: 20050101, end: 20050101
  2. NEBIVOLOL (NEBIVOLOL) [Suspect]
     Indication: HYPERTENSION
     Dates: start: 20050101, end: 20050101

REACTIONS (6)
  - ARRHYTHMIA [None]
  - ATRIAL FIBRILLATION [None]
  - BRADYCARDIA [None]
  - CONDITION AGGRAVATED [None]
  - DRUG TOLERANCE DECREASED [None]
  - RAYNAUD'S PHENOMENON [None]
